FAERS Safety Report 12957859 (Version 2)
Quarter: 2016Q4

REPORT INFORMATION
  Report Type: Spontaneous
  Country: PH (occurrence: PH)
  Receive Date: 20161118
  Receipt Date: 20161125
  Transmission Date: 20170207
  Serious: Yes (Other)
  Sender: FDA-Public Use
  Company Number: PH-ABBVIE-16P-128-1786876-00

PATIENT
  Age: 33 Year
  Sex: Female

DRUGS (1)
  1. LUPROLEX [Suspect]
     Active Substance: LEUPROLIDE ACETATE
     Indication: PRODUCT USED FOR UNKNOWN INDICATION
     Dosage: 3.75 MG, MONTHLY
     Route: 065

REACTIONS (1)
  - Haematoma [Unknown]
